FAERS Safety Report 23398944 (Version 2)
Quarter: 2024Q1

REPORT INFORMATION
  Report Type: Spontaneous
  Country: CH (occurrence: CH)
  Receive Date: 20240112
  Receipt Date: 20240116
  Transmission Date: 20240410
  Serious: Yes (Other)
  Sender: FDA-Public Use
  Company Number: CH-BIOGEN-2022BI01091024

PATIENT
  Age: 58 Year
  Sex: Female

DRUGS (2)
  1. DALFAMPRIDINE [Suspect]
     Active Substance: DALFAMPRIDINE
     Indication: Secondary progressive multiple sclerosis
     Route: 050
  2. COPAXONE [Concomitant]
     Active Substance: GLATIRAMER ACETATE
     Indication: Secondary progressive multiple sclerosis
     Route: 050

REACTIONS (21)
  - Metabolic encephalopathy [Unknown]
  - Off label use [Unknown]
  - Hyponatraemia [Unknown]
  - Hypomagnesaemia [Unknown]
  - Hypophosphataemia [Unknown]
  - Obstructive sleep apnoea syndrome [Unknown]
  - Glycosuria [Unknown]
  - Cerebral atrophy [Unknown]
  - Allergy to metals [Unknown]
  - Antimicrobial susceptibility test resistant [Unknown]
  - General physical health deterioration [Unknown]
  - Electrolyte imbalance [Unknown]
  - Cholelithiasis [Unknown]
  - Disturbance in attention [Unknown]
  - Device related infection [Unknown]
  - Escherichia test positive [Unknown]
  - Gastrointestinal disorder [Unknown]
  - Carbohydrate intolerance [Unknown]
  - Irritable bowel syndrome [Unknown]
  - Urinary tract infection enterococcal [Unknown]
  - Urinary tract infection pseudomonal [Unknown]

NARRATIVE: CASE EVENT DATE: 20210501
